FAERS Safety Report 9745143 (Version 1)
Quarter: 2013Q4

REPORT INFORMATION
  Report Type: Spontaneous
  Country: CA (occurrence: CA)
  Receive Date: 20131211
  Receipt Date: 20131211
  Transmission Date: 20140711
  Serious: Yes (Other)
  Sender: FDA-Public Use
  Company Number: CA-AMGEN-CANSP2013086458

PATIENT
  Age: 65 Year
  Sex: Female
  Weight: 80 kg

DRUGS (20)
  1. ENBREL [Suspect]
     Indication: PRODUCT USED FOR UNKNOWN INDICATION
     Dosage: 50 MG, QWK
     Route: 058
  2. METHOTREXATE [Suspect]
     Indication: PRODUCT USED FOR UNKNOWN INDICATION
     Dosage: 0.8 MG, UNK
     Route: 065
  3. ADALAT XL [Concomitant]
     Dosage: UNK
  4. ARTHROTEC [Concomitant]
     Dosage: UNK
  5. BENTYLOL [Concomitant]
     Dosage: UNK
  6. BRICANYL TURBUHALER [Concomitant]
     Dosage: UNK
  7. CIPROFLOXACIN [Concomitant]
     Dosage: UNK
  8. CYCLOBENZAPRINE [Concomitant]
     Dosage: UNK
  9. DIOVAN [Concomitant]
     Dosage: UNK
  10. FIORINAL                           /00090401/ [Concomitant]
     Dosage: UNK
  11. FOLIC ACID [Concomitant]
     Dosage: UNK
  12. LOSEC                              /00661201/ [Concomitant]
     Dosage: UNK
  13. NASONEX [Concomitant]
     Dosage: UNK
  14. PREDNISOLONE [Concomitant]
     Dosage: UNK
  15. RISEDRONATE SODIUM [Concomitant]
     Dosage: UNK
  16. TENORMIN [Concomitant]
     Dosage: UNK
  17. TRAMACET [Concomitant]
     Dosage: UNK
  18. TRIFLUOPERAZINE [Concomitant]
     Dosage: UNK
  19. VENLAFAXINE XR [Concomitant]
     Dosage: UNK
  20. XANAX [Concomitant]
     Dosage: UNK

REACTIONS (8)
  - Cataract [Not Recovered/Not Resolved]
  - Activities of daily living impaired [Not Recovered/Not Resolved]
  - Fatigue [Not Recovered/Not Resolved]
  - Headache [Not Recovered/Not Resolved]
  - Pain [Not Recovered/Not Resolved]
  - Rash [Not Recovered/Not Resolved]
  - Somnolence [Not Recovered/Not Resolved]
  - Tremor [Not Recovered/Not Resolved]
